FAERS Safety Report 19375347 (Version 1)
Quarter: 2021Q2

REPORT INFORMATION
  Report Type: Not Available
  Country: US (occurrence: US)
  Receive Date: 20210604
  Receipt Date: 20210604
  Transmission Date: 20210717
  Serious: Yes (Life-Threatening, Other)
  Sender: FDA-Public Use
  Company Number: US-C B FLEET CO INC-202105-US-001766

PATIENT
  Sex: Female

DRUGS (1)
  1. GOODYS COOL ORANGE HEADACHE [Suspect]
     Active Substance: ACETAMINOPHEN\ASPIRIN\CAFFEINE
     Indication: HEADACHE
     Dosage: USED 1 POWDER
     Route: 048
     Dates: start: 20210407, end: 20210407

REACTIONS (1)
  - Anaphylactic reaction [Recovered/Resolved]
